FAERS Safety Report 24659635 (Version 1)
Quarter: 2024Q4

REPORT INFORMATION
  Report Type: Spontaneous
  Country: CN (occurrence: CN)
  Receive Date: 20241125
  Receipt Date: 20241125
  Transmission Date: 20250114
  Serious: Yes (Other)
  Sender: PFIZER
  Company Number: CN-PFIZER INC-PV202400151302

PATIENT
  Age: 76 Year
  Sex: Male
  Weight: 49 kg

DRUGS (2)
  1. VFEND [Suspect]
     Active Substance: VORICONAZOLE
     Indication: Bronchopulmonary aspergillosis
     Dosage: 0.2 G, 2X/DAY
     Route: 048
     Dates: start: 20241016
  2. VFEND [Suspect]
     Active Substance: VORICONAZOLE
     Dosage: 1 DF, 1X/DAY
     Dates: start: 20241017, end: 20241019

REACTIONS (7)
  - Hallucination [Recovering/Resolving]
  - Delirium [Recovering/Resolving]
  - Agitation [Recovering/Resolving]
  - Disorganised speech [Recovering/Resolving]
  - Initial insomnia [Recovering/Resolving]
  - Poor quality sleep [Recovering/Resolving]
  - Off label use [Unknown]

NARRATIVE: CASE EVENT DATE: 20241017
